FAERS Safety Report 13170583 (Version 1)
Quarter: 2017Q1

REPORT INFORMATION
  Report Type: Spontaneous
  Country: PL (occurrence: PL)
  Receive Date: 20170201
  Receipt Date: 20170201
  Transmission Date: 20170428
  Serious: Yes (Other)
  Sender: FDA-Public Use
  Company Number: PL-SUN PHARMACEUTICAL INDUSTRIES LTD-2017RR-132586

PATIENT
  Age: 58 Year
  Sex: Female

DRUGS (2)
  1. GEMCITABINE [Suspect]
     Active Substance: GEMCITABINE\GEMCITABINE HYDROCHLORIDE
     Indication: RENAL CELL CARCINOMA
     Dosage: 9 CHEMOTHERAPY COURSES, DOSE REDUCED BY 25 %
     Route: 065
     Dates: start: 2011, end: 201204
  2. DOXORUBICIN [Suspect]
     Active Substance: DOXORUBICIN
     Indication: RENAL CELL CARCINOMA
     Dosage: 9 CHEMOTHERAPY COURSES, DOSE REDUCTION BY 25%
     Route: 065
     Dates: start: 2011, end: 201204

REACTIONS (2)
  - Disease progression [Unknown]
  - Neutropenia [Unknown]
